FAERS Safety Report 12179678 (Version 1)
Quarter: 2016Q1

REPORT INFORMATION
  Report Type: Report from Study
  Country: DE (occurrence: DE)
  Receive Date: 20160314
  Receipt Date: 20160314
  Transmission Date: 20160526
  Serious: Yes (Hospitalization, Other)
  Sender: FDA-Public Use
  Company Number: DE-ABBVIE-16K-062-1576361-00

PATIENT
  Age: 19 Year
  Sex: Female

DRUGS (24)
  1. MYCOPHENOLATE MOFETIL. [Suspect]
     Active Substance: MYCOPHENOLATE MOFETIL
     Indication: LEUKOPENIA
  2. CIPROFLOXACIN. [Suspect]
     Active Substance: CIPROFLOXACIN
     Indication: URINARY TRACT INFECTION
     Route: 065
     Dates: start: 201512, end: 20151220
  3. UROMITEXAN [Concomitant]
     Active Substance: MESNA
     Indication: BLADDER DISORDER
  4. METAMIZOL [Interacting]
     Active Substance: METAMIZOLE SODIUM
     Indication: PRODUCT USED FOR UNKNOWN INDICATION
     Route: 065
  5. CYCLOPHOSPHAMID [Suspect]
     Active Substance: CYCLOPHOSPHAMIDE
     Indication: SYSTEMIC LUPUS ERYTHEMATOSUS
     Route: 042
     Dates: start: 20151013, end: 20151222
  6. PREDNISOLON [Concomitant]
     Active Substance: PREDNISOLONE
     Indication: JUVENILE IDIOPATHIC ARTHRITIS
     Dates: end: 201510
  7. GNRH DEPOT [Concomitant]
     Indication: PROPHYLAXIS
     Dates: start: 20150929
  8. AMPHO-MORONAL [Concomitant]
     Active Substance: AMPHOTERICIN B
     Indication: INFECTION PROPHYLAXIS
  9. HUMIRA [Suspect]
     Active Substance: ADALIMUMAB
     Indication: JUVENILE IDIOPATHIC ARTHRITIS
     Route: 058
     Dates: start: 200905, end: 201012
  10. PREDNISOLON [Concomitant]
     Active Substance: PREDNISOLONE
     Dates: start: 20151209
  11. MAGNESIOCARD [Concomitant]
     Active Substance: MAGNESIUM ASPARTATE HYDROCHLORIDE
     Indication: PRODUCT USED FOR UNKNOWN INDICATION
  12. COTRIMOXAZOL [Interacting]
     Active Substance: SULFAMETHOXAZOLE\TRIMETHOPRIM
     Indication: PRODUCT USED FOR UNKNOWN INDICATION
     Route: 065
  13. GNRH DEPOT [Concomitant]
     Indication: OVARIAN DISORDER
  14. DEKRISTOL [Concomitant]
     Active Substance: CHOLECALCIFEROL
     Indication: PRODUCT USED FOR UNKNOWN INDICATION
  15. TRAMAL [Suspect]
     Active Substance: TRAMADOL
     Indication: PRODUCT USED FOR UNKNOWN INDICATION
     Route: 065
  16. METHOTREXATE [Interacting]
     Active Substance: METHOTREXATE
     Indication: JUVENILE IDIOPATHIC ARTHRITIS
     Dosage: VARYING DOSES
     Route: 065
     Dates: start: 2006, end: 201504
  17. MYCOPHENOLATE MOFETIL. [Suspect]
     Active Substance: MYCOPHENOLATE MOFETIL
     Indication: BONE MARROW FAILURE
     Route: 065
     Dates: start: 20150427, end: 20151012
  18. MYCOPHENOLATE MOFETIL. [Suspect]
     Active Substance: MYCOPHENOLATE MOFETIL
     Indication: GRANULOCYTOPENIA
  19. UROMITEXAN [Concomitant]
     Active Substance: MESNA
     Indication: PROPHYLAXIS
  20. PANTOPRAZOL [Concomitant]
     Active Substance: PANTOPRAZOLE SODIUM
     Indication: PRODUCT USED FOR UNKNOWN INDICATION
  21. BELOC-ZOK COMP [Concomitant]
     Active Substance: HYDROCHLOROTHIAZIDE\METOPROLOL SUCCINATE
     Indication: PRODUCT USED FOR UNKNOWN INDICATION
  22. PROCORALAN [Concomitant]
     Active Substance: IVABRADINE
     Indication: PRODUCT USED FOR UNKNOWN INDICATION
  23. PREDNISOLON [Concomitant]
     Active Substance: PREDNISOLONE
     Dates: start: 20151222
  24. QUENSYL [Concomitant]
     Active Substance: HYDROXYCHLOROQUINE
     Indication: PRODUCT USED FOR UNKNOWN INDICATION
     Dates: start: 201401

REACTIONS (49)
  - Lupus myocarditis [Unknown]
  - Cardiac failure [Unknown]
  - Angina pectoris [Unknown]
  - Sjogren^s syndrome [Unknown]
  - Vitamin B12 deficiency [Unknown]
  - Hyperaesthesia [Unknown]
  - Vasculitis [Unknown]
  - Arthritis [Recovering/Resolving]
  - Drug effect incomplete [Unknown]
  - Dyspnoea exertional [Unknown]
  - Antinuclear antibody positive [Unknown]
  - Drug hypersensitivity [Unknown]
  - Granulocytopenia [Unknown]
  - Skin papilloma [Unknown]
  - Iron deficiency [Unknown]
  - Palpitations [Unknown]
  - Urinary tract infection enterococcal [Unknown]
  - Respiratory failure [Unknown]
  - Cardiac failure [Recovering/Resolving]
  - Relapsing fever [Unknown]
  - Ischaemia [Unknown]
  - Pericardial effusion [Unknown]
  - Bone marrow failure [Unknown]
  - Systemic lupus erythematosus [Not Recovered/Not Resolved]
  - Raynaud^s phenomenon [Unknown]
  - Livedo reticularis [Unknown]
  - Aphthous ulcer [Unknown]
  - Dermatitis allergic [Unknown]
  - Myocarditis [Unknown]
  - Tachycardia induced cardiomyopathy [Unknown]
  - Leukopenia [Unknown]
  - Dyspnoea [Unknown]
  - Nausea [Recovering/Resolving]
  - Arthralgia [Unknown]
  - Raynaud^s phenomenon [Unknown]
  - Hypochromic anaemia [Unknown]
  - Tremor [Unknown]
  - Tachycardia [Unknown]
  - Peripheral swelling [Unknown]
  - Escherichia urinary tract infection [Unknown]
  - General physical health deterioration [Unknown]
  - Mouth ulceration [Unknown]
  - Constipation [Not Recovered/Not Resolved]
  - Normochromic normocytic anaemia [Unknown]
  - Pyrexia [Recovered/Resolved]
  - Abdominal pain lower [Not Recovered/Not Resolved]
  - Leukopenia [Unknown]
  - Nuclear magnetic resonance imaging abnormal [Unknown]
  - Alopecia [Unknown]

NARRATIVE: CASE EVENT DATE: 201012
